FAERS Safety Report 21241550 (Version 1)
Quarter: 2022Q3

REPORT INFORMATION
  Report Type: Spontaneous
  Country: US (occurrence: None)
  Receive Date: 20220823
  Receipt Date: 20220823
  Transmission Date: 20221027
  Serious: No
  Sender: FDA-Public Use
  Company Number: US-Merck Healthcare KGaA-9344349

PATIENT
  Sex: Female

DRUGS (1)
  1. REBIF [Suspect]
     Active Substance: INTERFERON BETA-1A
     Indication: Multiple sclerosis
     Dosage: STRENGTH: 44MCG/ 0.5 ML
     Route: 058
     Dates: start: 20200110

REACTIONS (1)
  - Flushing [Unknown]
